FAERS Safety Report 17967731 (Version 3)
Quarter: 2020Q3

REPORT INFORMATION
  Report Type: Spontaneous
  Country: US (occurrence: US)
  Receive Date: 20200701
  Receipt Date: 20200714
  Transmission Date: 20201103
  Serious: No
  Sender: FDA-Public Use
  Company Number: US-PFIZER INC-2020251952

PATIENT
  Age: 61 Year
  Sex: Female

DRUGS (3)
  1. FASLODEX [Concomitant]
     Active Substance: FULVESTRANT
     Indication: NEOPLASM MALIGNANT
     Dosage: UNK
  2. IBRANCE [Suspect]
     Active Substance: PALBOCICLIB
     Indication: BREAST CANCER METASTATIC
     Dosage: 75 MG, CYCLIC (75 MG ONCE A DAY FOR THREE WEEKS ON AND THEN WEEK OFF)
     Route: 048
  3. IBRANCE [Suspect]
     Active Substance: PALBOCICLIB
     Dosage: 75 MG, CYCLIC (75 MG ONCE A DAY FOR THREE WEEKS ON AND THEN WEEK OFF)
     Route: 048
     Dates: start: 20200618

REACTIONS (4)
  - Neutrophil count decreased [Recovering/Resolving]
  - Weight decreased [Unknown]
  - Diarrhoea [Not Recovered/Not Resolved]
  - Malabsorption [Unknown]

NARRATIVE: CASE EVENT DATE: 20200516
